FAERS Safety Report 7652067 (Version 5)
Quarter: 2014Q1

REPORT INFORMATION
  Report Type: Spontaneous
  Country: US (occurrence: US)
  Receive Date: 20101101
  Receipt Date: 20140131
  Transmission Date: 20141002
  Serious: Yes (Hospitalization, Other)
  Sender: FDA-Public Use
  Company Number: US-BAYER-201038649NA

PATIENT
  Age: 25 Year
  Sex: Female
  Weight: 129.25 kg

DRUGS (5)
  1. YASMIN [Suspect]
     Indication: PRODUCT USED FOR UNKNOWN INDICATION
     Dosage: UNK
     Route: 048
     Dates: start: 2004
  2. HYDROCHLOROTHIAZIDE [Concomitant]
  3. FLUOXETINE [Concomitant]
  4. FAMOTIDINE [Concomitant]
  5. VICODIN [Concomitant]

REACTIONS (9)
  - Bile duct stone [Unknown]
  - Abdominal pain [Unknown]
  - Vomiting [Unknown]
  - Jaundice [Unknown]
  - Abdominal tenderness [Unknown]
  - Cholecystitis chronic [None]
  - Bile duct obstruction [Unknown]
  - Gallbladder non-functioning [Unknown]
  - Procedural pain [None]
